FAERS Safety Report 4444453-1 (Version None)
Quarter: 2004Q3

REPORT INFORMATION
  Report Type: 
  Country: None (occurrence: None)
  Receive Date: 20040902
  Receipt Date: 20040816
  Transmission Date: 20050211
  Serious: Yes (Hospitalization, Other)
  Sender: FDA-Public Use
  Company Number: USA040875741

PATIENT
  Age: 79 Year
  Sex: Female

DRUGS (2)
  1. FORTEO [Suspect]
     Dates: start: 20030701
  2. LASIX [Concomitant]

REACTIONS (5)
  - CARDIAC DISORDER [None]
  - CARDIAC PACEMAKER MALFUNCTION [None]
  - HYPERTENSION [None]
  - OEDEMA PERIPHERAL [None]
  - PULMONARY OEDEMA [None]
